FAERS Safety Report 6899346-7 (Version None)
Quarter: 2010Q3

REPORT INFORMATION
  Report Type: 
  Country: None (occurrence: None)
  Receive Date: 20100803
  Receipt Date: 20090408
  Transmission Date: 20110219
  Serious: No
  Sender: FDA-Public Use
  Company Number: US-PFIZER INC-2009171540

PATIENT
  Sex: Female

DRUGS (3)
  1. NEURONTIN [Suspect]
     Indication: FIBROMYALGIA
     Dosage: 400 MG, 3X/DAY
  2. OXYCONTIN [Interacting]
     Dosage: 40 MG, 3X/DAY
  3. LEXAPRO [Concomitant]
     Dosage: 20 MG DAILY

REACTIONS (3)
  - DRUG INTERACTION [None]
  - PAIN [None]
  - SEDATION [None]
